FAERS Safety Report 8824338 (Version 1)
Quarter: 2012Q4

REPORT INFORMATION
  Report Type: 
  Country: US (occurrence: US)
  Receive Date: 20121004
  Receipt Date: 20121004
  Transmission Date: 20130627
  Serious: Yes (Hospitalization)
  Sender: FDA-Public Use
  Company Number: US-BAYER-2012-102922

PATIENT
  Age: 52 Year
  Sex: Female

DRUGS (13)
  1. YAZ [Suspect]
     Indication: MENOPAUSAL SYMPTOMS
     Dosage: UNK
     Dates: start: 20090806, end: 20091125
  2. SERTRALINE [Concomitant]
     Dosage: 50 mg, UNK
  3. SERTRALINE [Concomitant]
     Dosage: 100 mg, UNK
  4. IBUPROFEN [Concomitant]
     Indication: PAIN
  5. NABUMETONE [Concomitant]
     Dosage: 75 mg, UNK
  6. CYCLOBENZAPRINE [Concomitant]
     Dosage: 10 mg, UNK
  7. HYDROCODONE W/APAP [Concomitant]
     Dosage: 5mg/500mg
  8. OMEPRAZOLE [Concomitant]
  9. ZOLOFT [Concomitant]
  10. TYLENOL [Concomitant]
  11. DARVOCET-N [Concomitant]
  12. ATIVAN [Concomitant]
  13. VICODIN [Concomitant]

REACTIONS (6)
  - Pulmonary embolism [None]
  - Pulmonary infarction [None]
  - Atelectasis [None]
  - Dyspnoea [None]
  - Pleuritic pain [None]
  - Pleural effusion [None]
